FAERS Safety Report 10388872 (Version 1)
Quarter: 2014Q1

REPORT INFORMATION
  Report Type: Spontaneous
  Country: US (occurrence: None)
  Receive Date: 20140306
  Receipt Date: 20140306
  Transmission Date: 20141002
  Serious: Yes (Other)
  Sender: FDA-Public Use
  Company Number: 163-21880-13071438

PATIENT
  Age: 80 Year
  Sex: Male
  Weight: 82.56 kg

DRUGS (10)
  1. REVLIMID (LENALIDOMIDE) (25 MILLIGRAM, CAPSULES) [Suspect]
     Indication: PLASMA CELL MYELOMA
     Route: 048
     Dates: start: 20130513
  2. NEULASTA (PEGFILGRASTIM) [Concomitant]
  3. NEUPOGEN (FILGRASTIM) [Concomitant]
  4. PROCRIT (ERYTHROPOIETIN) [Concomitant]
  5. ASA (ACETYLSALICYLIC ACID) [Concomitant]
  6. METFORMIN [Concomitant]
  7. HYDROCHLOROTHIAZIDE [Concomitant]
  8. ATENOLOL [Concomitant]
  9. ALLOPURINOL [Concomitant]
  10. DEXAMETHASONE [Concomitant]

REACTIONS (6)
  - Pancytopenia [None]
  - Anaemia [None]
  - Neutropenia [None]
  - Thrombocytopenia [None]
  - Hypersomnia [None]
  - Asthenia [None]
